FAERS Safety Report 4906272-9 (Version None)
Quarter: 2006Q1

REPORT INFORMATION
  Report Type: 
  Country: None (occurrence: None)
  Receive Date: 20060207
  Receipt Date: 20050523
  Transmission Date: 20060701
  Serious: Yes (Other)
  Sender: FDA-Public Use
  Company Number: 2005077528

PATIENT
  Age: 77 Year
  Sex: Female
  Weight: 78 kg

DRUGS (9)
  1. NORVASC [Suspect]
     Indication: HYPERTENSION
     Dosage: 5 MG (5 MG,DAILY), ORAL
     Route: 048
     Dates: start: 20050517, end: 20050519
  2. BISOPROLOL [Concomitant]
  3. BENAZEPRIL HYDROCHLORIDE [Concomitant]
  4. FUROSEMIDE [Concomitant]
  5. DOXAZOSIN [Concomitant]
  6. CILAZAPRIL [Concomitant]
  7. DILTIAZEM HCL [Concomitant]
  8. PRIMIDONE [Concomitant]
  9. VITAMINS [Concomitant]

REACTIONS (7)
  - BURNING SENSATION [None]
  - DIZZINESS [None]
  - ERYTHEMA [None]
  - EYE IRRITATION [None]
  - FACE OEDEMA [None]
  - INDURATION [None]
  - LACRIMATION INCREASED [None]
